FAERS Safety Report 14262545 (Version 1)
Quarter: 2017Q4

REPORT INFORMATION
  Report Type: Spontaneous
  Country: US (occurrence: US)
  Receive Date: 20171208
  Receipt Date: 20171208
  Transmission Date: 20180321
  Serious: No
  Sender: FDA-Public Use
  Company Number: US-PFIZER INC-2017517971

PATIENT
  Age: 60 Year
  Sex: Female
  Weight: 55.33 kg

DRUGS (8)
  1. UCERIS [Concomitant]
     Active Substance: BUDESONIDE
     Dosage: UNK
  2. ACIPHEX [Concomitant]
     Active Substance: RABEPRAZOLE SODIUM
     Dosage: UNK
  3. LYRICA [Suspect]
     Active Substance: PREGABALIN
     Dosage: 200 MG, TWICE A DAY
  4. SKELAXIN [Concomitant]
     Active Substance: METAXALONE
     Dosage: UNK
  5. XYZAL [Concomitant]
     Active Substance: LEVOCETIRIZINE DIHYDROCHLORIDE
     Dosage: UNK
  6. HUMIRA [Concomitant]
     Active Substance: ADALIMUMAB
     Dosage: 40 MG, UNK
  7. LYRICA [Suspect]
     Active Substance: PREGABALIN
     Dosage: 200 MG, THRICE A DAY
  8. LIALDA [Concomitant]
     Active Substance: MESALAMINE
     Dosage: UNK

REACTIONS (22)
  - Vertigo [Not Recovered/Not Resolved]
  - Anxiety [Unknown]
  - Pain [Unknown]
  - Nausea [Unknown]
  - Speech disorder [Recovering/Resolving]
  - Arthralgia [Unknown]
  - Headache [Unknown]
  - Chills [Unknown]
  - Crying [Unknown]
  - Weight decreased [Unknown]
  - Influenza like illness [Unknown]
  - Restless legs syndrome [Unknown]
  - Hot flush [Unknown]
  - Decreased appetite [Unknown]
  - Withdrawal syndrome [Unknown]
  - Pruritus [Unknown]
  - Insomnia [Unknown]
  - Diarrhoea [Unknown]
  - Dizziness [Unknown]
  - Asthenia [Unknown]
  - Restlessness [Unknown]
  - Feeling abnormal [Unknown]
